FAERS Safety Report 21477248 (Version 2)
Quarter: 2023Q2

REPORT INFORMATION
  Report Type: Spontaneous
  Country: CA (occurrence: CA)
  Receive Date: 20221019
  Receipt Date: 20230531
  Transmission Date: 20230722
  Serious: Yes (Other)
  Sender: FDA-Public Use
  Company Number: CA-ADVANZ PHARMA-202210006723

PATIENT
  Age: 67 Year
  Sex: Female

DRUGS (3)
  1. OCALIVA [Suspect]
     Active Substance: OBETICHOLIC ACID
     Indication: Primary biliary cholangitis
     Dosage: 5 MG, QD (OCALIVA)
     Route: 048
     Dates: start: 20220615
  2. OCALIVA [Suspect]
     Active Substance: OBETICHOLIC ACID
     Dosage: 10 MG, QD (IN AM)
     Route: 048
     Dates: start: 20230502
  3. URSODIOL [Concomitant]
     Active Substance: URSODIOL
     Dosage: 1000 MG, BID (IN AM AND NIGHT)

REACTIONS (5)
  - Diabetes mellitus [Unknown]
  - Neck pain [Unknown]
  - Fatigue [Unknown]
  - Abdominal pain upper [Unknown]
  - Pruritus [Not Recovered/Not Resolved]
